FAERS Safety Report 4283364-1 (Version None)
Quarter: 2004Q1

REPORT INFORMATION
  Report Type: 
  Country: None (occurrence: None)
  Receive Date: 20040202
  Receipt Date: 20040106
  Transmission Date: 20041129
  Serious: No
  Sender: FDA-Public Use
  Company Number: PHHO2004CA00595

PATIENT
  Age: 45 Year
  Sex: Female

DRUGS (1)
  1. ZELNORM [Suspect]
     Indication: CONSTIPATION
     Dosage: 10 MG, BID
     Route: 048
     Dates: start: 20031117, end: 20031203

REACTIONS (4)
  - ABDOMINAL DISTENSION [None]
  - CONSTIPATION [None]
  - DRUG INEFFECTIVE [None]
  - OEDEMA PERIPHERAL [None]
